FAERS Safety Report 4478261-2 (Version None)
Quarter: 2004Q4

REPORT INFORMATION
  Report Type: 
  Country: None (occurrence: None)
  Receive Date: 20041018
  Receipt Date: 20041018
  Transmission Date: 20050328
  Serious: Yes (Hospitalization)
  Sender: FDA-Public Use
  Company Number: None

PATIENT
  Age: 59 Year
  Sex: Male

DRUGS (5)
  1. LISINOPRIL [Suspect]
     Indication: HYPERTENSION
     Dosage: 20 MG QD
     Dates: start: 20040831
  2. SIMVASTATIN [Concomitant]
  3. METOPROLOL [Concomitant]
  4. PROZAC [Concomitant]
  5. FELODIPINE [Concomitant]

REACTIONS (1)
  - ANGIONEUROTIC OEDEMA [None]
